FAERS Safety Report 8127218-9 (Version None)
Quarter: 2012Q1

REPORT INFORMATION
  Report Type: 
  Country: None (occurrence: None)
  Receive Date: 20120210
  Receipt Date: 20120208
  Transmission Date: 20120608
  Serious: Yes (Other)
  Sender: FDA-Public Use
  Company Number: US-PFIZER INC-2012034930

PATIENT
  Sex: Female
  Weight: 99.773 kg

DRUGS (1)
  1. IBUPROFEN (ADVIL) [Suspect]
     Indication: BACK DISORDER
     Dosage: 800 MG, 1X/DAY
     Route: 048
     Dates: end: 20120207

REACTIONS (4)
  - CHEST DISCOMFORT [None]
  - SWELLING FACE [None]
  - HYPERSENSITIVITY [None]
  - EYE SWELLING [None]
